FAERS Safety Report 8331638-7 (Version None)
Quarter: 2012Q2

REPORT INFORMATION
  Report Type: 
  Country: None (occurrence: None)
  Receive Date: 20120502
  Receipt Date: 20120420
  Transmission Date: 20120825
  Serious: Yes (Hospitalization)
  Sender: FDA-Public Use
  Company Number: US-AMGEN-USASP2011054639

PATIENT
  Age: 62 Year
  Sex: Female

DRUGS (2)
  1. ENBREL [Suspect]
     Dosage: 50 MG, QWK
     Dates: start: 20110901, end: 20110930
  2. ENBREL [Suspect]
     Indication: PRODUCT USED FOR UNKNOWN INDICATION
     Dosage: 50 MG, UNK
     Route: 058
     Dates: start: 20110901

REACTIONS (7)
  - MALAISE [None]
  - URINARY TRACT INFECTION [None]
  - PYREXIA [None]
  - DIARRHOEA [None]
  - NAUSEA [None]
  - GASTROENTERITIS VIRAL [None]
  - CHEST PAIN [None]
